FAERS Safety Report 6093748-7 (Version None)
Quarter: 2009Q1

REPORT INFORMATION
  Report Type: 
  Country: None (occurrence: None)
  Receive Date: 20090226
  Receipt Date: 20090219
  Transmission Date: 20090719
  Serious: Yes (Death)
  Sender: FDA-Public Use
  Company Number: US-BAYER-200910423BCC

PATIENT
  Age: 85 Year
  Sex: Male

DRUGS (2)
  1. ALEVE [Suspect]
     Indication: ARTHRALGIA
     Dosage: TOTAL DAILY DOSE: 220 MG  UNIT DOSE: 220 MG
  2. ANTIHYPERTENSIVE [Concomitant]

REACTIONS (4)
  - BLOOD PRESSURE DECREASED [None]
  - GASTRIC ULCER PERFORATION [None]
  - HAEMATEMESIS [None]
  - HAEMATOCHEZIA [None]
